FAERS Safety Report 19485502 (Version 1)
Quarter: 2021Q3

REPORT INFORMATION
  Report Type: Spontaneous
  Country: US (occurrence: US)
  Receive Date: 20210702
  Receipt Date: 20210702
  Transmission Date: 20211014
  Serious: Yes (Hospitalization, Other)
  Sender: FDA-Public Use
  Company Number: US-ROCHE-2842985

PATIENT
  Age: 52 Year
  Sex: Female

DRUGS (8)
  1. ENOXAPARIN SODIUM. [Concomitant]
     Active Substance: ENOXAPARIN SODIUM
  2. CYCLOBENZAPRINE. [Concomitant]
     Active Substance: CYCLOBENZAPRINE
  3. KEPPRA [Concomitant]
     Active Substance: LEVETIRACETAM
  4. MEMANTINE. [Concomitant]
     Active Substance: MEMANTINE
  5. CAPECITABINE. [Suspect]
     Active Substance: CAPECITABINE
     Indication: PRODUCT USED FOR UNKNOWN INDICATION
     Route: 065
  6. TUKYSA [Suspect]
     Active Substance: TUCATINIB
     Indication: MALIGNANT NIPPLE NEOPLASM
     Route: 065
  7. TUKYSA [Suspect]
     Active Substance: TUCATINIB
     Indication: METASTASES TO BONE MARROW
     Route: 065
  8. HYDROCODONE/ACETAMINOPHEN [Concomitant]
     Active Substance: ACETAMINOPHEN\HYDROCODONE

REACTIONS (7)
  - Thrombocytopenia [Not Recovered/Not Resolved]
  - Fatigue [Recovering/Resolving]
  - Colitis [Recovering/Resolving]
  - Diarrhoea [Recovered/Resolved]
  - Clostridium difficile infection [Recovering/Resolving]
  - Haematochezia [Unknown]
  - Decreased appetite [Recovering/Resolving]

NARRATIVE: CASE EVENT DATE: 20201216
